FAERS Safety Report 9895869 (Version 2)
Quarter: 2014Q1

REPORT INFORMATION
  Report Type: Spontaneous
  Country: US (occurrence: US)
  Receive Date: 20140213
  Receipt Date: 20140213
  Transmission Date: 20141002
  Serious: No
  Sender: FDA-Public Use
  Company Number: US-BRISTOL-MYERS SQUIBB COMPANY-17296401

PATIENT
  Age: 55 Year
  Sex: Male

DRUGS (1)
  1. ORENCIA FOR INJ [Suspect]
     Indication: RHEUMATOID ARTHRITIS
     Dosage: RECENT DOSE 30AUG2012?START:22SEP2009?STOP:03MAY2012
     Route: 042
     Dates: start: 20090827

REACTIONS (4)
  - Anxiety [Unknown]
  - Drug dose omission [Unknown]
  - Urinary tract infection [Unknown]
  - Bronchitis [Unknown]
